FAERS Safety Report 10459779 (Version 1)
Quarter: 2014Q3

REPORT INFORMATION
  Report Type: Report from Study
  Country: CA (occurrence: CA)
  Receive Date: 20140917
  Receipt Date: 20140917
  Transmission Date: 20150326
  Serious: Yes (Other)
  Sender: FDA-Public Use
  Company Number: CA-BRISTOL-MYERS SQUIBB COMPANY-21389739

PATIENT
  Age: 68 Year
  Sex: Female

DRUGS (13)
  1. BISOPROLOL [Concomitant]
     Active Substance: BISOPROLOL
  2. HYDROMORPH CONTIN [Concomitant]
     Active Substance: HYDROMORPHONE
  3. ORENCIA [Suspect]
     Active Substance: ABATACEPT
     Indication: RHEUMATOID ARTHRITIS
     Route: 058
     Dates: start: 20140411
  4. PARIET [Concomitant]
     Active Substance: RABEPRAZOLE SODIUM
  5. FUROSEMIDE. [Concomitant]
     Active Substance: FUROSEMIDE
  6. CALCIUM [Concomitant]
     Active Substance: CALCIUM
  7. PREDNISONE. [Concomitant]
     Active Substance: PREDNISONE
  8. COVERSYL [Concomitant]
     Active Substance: PERINDOPRIL
  9. VITAMIN D [Concomitant]
     Active Substance: CHOLECALCIFEROL
  10. JANUVIA [Concomitant]
     Active Substance: SITAGLIPTIN PHOSPHATE
  11. FENTANYL. [Concomitant]
     Active Substance: FENTANYL
  12. METFORMIN [Concomitant]
     Active Substance: METFORMIN HYDROCHLORIDE
  13. ELAVIL [Concomitant]
     Active Substance: AMITRIPTYLINE HYDROCHLORIDE

REACTIONS (1)
  - Scar excision [Unknown]
